FAERS Safety Report 4537889-1 (Version None)
Quarter: 2004Q4

REPORT INFORMATION
  Report Type: 
  Country: None (occurrence: None)
  Receive Date: 20041224
  Receipt Date: 20041213
  Transmission Date: 20050328
  Serious: Yes (Hospitalization)
  Sender: FDA-Public Use
  Company Number: US-MERCK-0412USA01631

PATIENT
  Age: 77 Year
  Sex: Female

DRUGS (6)
  1. FOSAMAX [Suspect]
     Indication: OSTEOPOROSIS
     Route: 048
  2. AMARYL [Concomitant]
     Route: 065
  3. STARLIX [Concomitant]
     Route: 065
  4. CELEBREX [Concomitant]
     Route: 065
  5. FORTAMET [Concomitant]
     Route: 065
  6. VITAMIN D (UNSPECIFIED) [Concomitant]
     Route: 065

REACTIONS (2)
  - HAEMATURIA [None]
  - SPINAL COMPRESSION FRACTURE [None]
